FAERS Safety Report 12690691 (Version 1)
Quarter: 2016Q3

REPORT INFORMATION
  Report Type: Spontaneous
  Country: US (occurrence: US)
  Receive Date: 20160826
  Receipt Date: 20160826
  Transmission Date: 20161109
  Serious: Yes (Other)
  Sender: FDA-Public Use
  Company Number: US-ELI_LILLY_AND_COMPANY-US201608012014

PATIENT
  Sex: Female
  Weight: 78.91 kg

DRUGS (3)
  1. PRENAT                             /00023601/ [Concomitant]
  2. PROZAC [Suspect]
     Active Substance: FLUOXETINE HYDROCHLORIDE
     Indication: DEPRESSION
     Dosage: 40 MG, QD
     Route: 048
     Dates: start: 200410
  3. PRILOSEC [Concomitant]
     Active Substance: OMEPRAZOLE MAGNESIUM

REACTIONS (6)
  - Muscle spasms [Unknown]
  - Pre-eclampsia [Unknown]
  - Exposure during pregnancy [Recovered/Resolved]
  - Exposure during breast feeding [Unknown]
  - Vaginal haemorrhage [Unknown]
  - Premature labour [Unknown]
